FAERS Safety Report 17006249 (Version 1)
Quarter: 2019Q4

REPORT INFORMATION
  Report Type: Spontaneous
  Country: GB (occurrence: GB)
  Receive Date: 20191107
  Receipt Date: 20191107
  Transmission Date: 20200122
  Serious: Yes (Other)
  Sender: FDA-Public Use
  Company Number: GB-ELI_LILLY_AND_COMPANY-GB201910014240

PATIENT
  Age: 28 Year
  Sex: Male
  Weight: 107.95 kg

DRUGS (1)
  1. STRATTERA [Suspect]
     Active Substance: ATOMOXETINE HYDROCHLORIDE
     Indication: ATTENTION DEFICIT/HYPERACTIVITY DISORDER
     Dosage: 25 MG, UNKNOWN
     Route: 048
     Dates: start: 20171217, end: 20171220

REACTIONS (1)
  - Homicidal ideation [Not Recovered/Not Resolved]

NARRATIVE: CASE EVENT DATE: 20171220
